FAERS Safety Report 9909030 (Version 1)
Quarter: 2014Q1

REPORT INFORMATION
  Report Type: Spontaneous
  Country: FR (occurrence: FR)
  Receive Date: 20140219
  Receipt Date: 20140219
  Transmission Date: 20141002
  Serious: Yes (Hospitalization)
  Sender: FDA-Public Use
  Company Number: FR-JNJFOC-20140210595

PATIENT
  Age: 30 Year
  Sex: Male

DRUGS (11)
  1. REMICADE [Suspect]
     Indication: BEHCET^S SYNDROME
     Dosage: 7TH CYCLE OF INFLIXIMAB
     Route: 042
     Dates: start: 20131209
  2. REMICADE [Suspect]
     Indication: BEHCET^S SYNDROME
     Dosage: 100 MG
     Route: 042
     Dates: start: 201306
  3. KEPPRA [Suspect]
     Indication: PRODUCT USED FOR UNKNOWN INDICATION
     Route: 065
  4. KEPPRA [Suspect]
     Indication: PRODUCT USED FOR UNKNOWN INDICATION
     Route: 065
  5. KEPPRA [Suspect]
     Indication: PRODUCT USED FOR UNKNOWN INDICATION
     Route: 065
     Dates: end: 20131211
  6. INEXIUM [Concomitant]
     Route: 065
  7. COLCHICINE [Concomitant]
     Route: 065
  8. DIFFU-K [Concomitant]
     Dosage: 3 DF
     Route: 065
  9. CORTANCYL [Concomitant]
     Route: 065
  10. FLUINDIONE [Concomitant]
     Route: 065
  11. CACIT D3 [Concomitant]
     Dosage: 1 DF
     Route: 065

REACTIONS (2)
  - Neuropsychiatric syndrome [Not Recovered/Not Resolved]
  - Off label use [Unknown]
